FAERS Safety Report 16338345 (Version 4)
Quarter: 2021Q1

REPORT INFORMATION
  Report Type: Spontaneous
  Country: GB (occurrence: GB)
  Receive Date: 20190521
  Receipt Date: 20210309
  Transmission Date: 20210419
  Serious: Yes (Other)
  Sender: FDA-Public Use
  Company Number: GB-JNJFOC-20190523637

PATIENT
  Age: 53 Year
  Sex: Male
  Weight: 66.8 kg

DRUGS (5)
  1. STELARA [Suspect]
     Active Substance: USTEKINUMAB
     Indication: CROHN^S DISEASE
     Route: 058
  2. STELARA [Suspect]
     Active Substance: USTEKINUMAB
     Route: 058
     Dates: start: 20180424
  3. LOPERAMIDE [Concomitant]
     Active Substance: LOPERAMIDE
  4. METHOTREXATE. [Concomitant]
     Active Substance: METHOTREXATE
  5. ZAPINE [Concomitant]

REACTIONS (6)
  - Cholelithiasis [Unknown]
  - Off label use [Unknown]
  - Product use issue [Unknown]
  - Therapeutic response decreased [Unknown]
  - Crohn^s disease [Unknown]
  - Hepatic cyst [Unknown]

NARRATIVE: CASE EVENT DATE: 20181008
